FAERS Safety Report 7321425-0 (Version None)
Quarter: 2011Q1

REPORT INFORMATION
  Report Type: 
  Country: None (occurrence: None)
  Receive Date: 20110228
  Receipt Date: 20100602
  Transmission Date: 20110831
  Serious: Yes (Other)
  Sender: FDA-Public Use
  Company Number: US-PFIZER INC-2010069535

PATIENT
  Age: 27 Year
  Sex: Male

DRUGS (2)
  1. ATIVAN [Concomitant]
     Dosage: UNK
     Route: 048
  2. GEODON [Suspect]
     Dosage: UNK
     Route: 048
     Dates: start: 20100501

REACTIONS (1)
  - TONGUE OEDEMA [None]
